FAERS Safety Report 8955143 (Version 1)
Quarter: 2012Q4

REPORT INFORMATION
  Report Type: 
  Country: US (occurrence: US)
  Receive Date: 20121210
  Receipt Date: 20121210
  Transmission Date: 20130627
  Serious: Yes (Other)
  Sender: FDA-Public Use
  Company Number: US-BIOGENIDEC-2012BI048220

PATIENT
  Age: 63 Year
  Sex: Female

DRUGS (1)
  1. AVONEX [Suspect]
     Indication: MULTIPLE SCLEROSIS
     Route: 030
     Dates: start: 201003

REACTIONS (4)
  - Osteonecrosis [Recovered/Resolved]
  - Fall [Recovered/Resolved]
  - Limb injury [Not Recovered/Not Resolved]
  - Poor peripheral circulation [Unknown]
